FAERS Safety Report 8971529 (Version 2)
Quarter: 2013Q1

REPORT INFORMATION
  Report Type: Spontaneous
  Country: US (occurrence: US)
  Receive Date: 20121218
  Receipt Date: 20130124
  Transmission Date: 20140127
  Serious: Yes (Death)
  Sender: FDA-Public Use
  Company Number: PHEH2012US024818

PATIENT
  Age: 58 Year
  Sex: Female

DRUGS (1)
  1. AFINITOR [Suspect]
     Indication: METASTASES TO BONE
     Route: 048
     Dates: start: 20120914

REACTIONS (2)
  - Metastases to bone [Fatal]
  - Malignant neoplasm progression [Fatal]
